FAERS Safety Report 5924793-7 (Version None)
Quarter: 2008Q4

REPORT INFORMATION
  Report Type: 
  Country: None (occurrence: None)
  Receive Date: 20081021
  Receipt Date: 20081013
  Transmission Date: 20090506
  Serious: Yes (Other)
  Sender: FDA-Public Use
  Company Number: US-RANBAXY-2008RR-18578

PATIENT
  Age: 55 Year
  Sex: Male

DRUGS (9)
  1. FLUCONAZOLE [Suspect]
     Dosage: 800-1600 MG, DAILY
  2. FLUCONAZOLE [Suspect]
     Dosage: UNK
     Dates: start: 19900101, end: 19940101
  3. AMPHOTERICIN B [Concomitant]
     Dosage: 25 MG, UNK
     Route: 042
     Dates: end: 20040201
  4. AMPHOTERICIN B [Concomitant]
     Dosage: 40 MG, UNK
  5. ITRACONAZOLE [Concomitant]
  6. VORICONAZOLE [Concomitant]
  7. POSACONAZOLE [Concomitant]
  8. ABELCET [Concomitant]
     Dosage: 4.5 MG/KG, QD
  9. AMPHOTERICIN B [Concomitant]

REACTIONS (1)
  - DRUG RESISTANCE [None]
